FAERS Safety Report 8997996 (Version 3)
Quarter: 2014Q1

REPORT INFORMATION
  Report Type: Spontaneous
  Country: US (occurrence: US)
  Receive Date: 20130104
  Receipt Date: 20140117
  Transmission Date: 20141002
  Serious: Yes (Hospitalization, Disabling, Other)
  Sender: FDA-Public Use
  Company Number: US-009507513-1301USA000969

PATIENT
  Sex: Female
  Weight: 55.78 kg

DRUGS (12)
  1. FOSAMAX [Suspect]
     Indication: OSTEOPOROSIS
     Dosage: 10 MG, QAM
     Route: 048
     Dates: start: 20000106
  2. FOSAMAX [Suspect]
     Indication: OSTEOPENIA
     Dosage: 70 MG, UNK
     Route: 048
  3. FOSAMAX [Suspect]
     Dosage: UNK UNK, QW
     Route: 048
  4. ALENDRONATE SODIUM [Suspect]
     Indication: OSTEOPOROSIS
     Dosage: 70 MG, UNK
     Dates: start: 201205, end: 201304
  5. ALENDRONATE SODIUM [Suspect]
     Indication: OSTEOPENIA
  6. OMEGA-3 MARINE TRIGLYCERIDES [Concomitant]
     Dosage: 1000 MG, UNK
     Dates: start: 1999
  7. CENTRUM SILVER [Concomitant]
     Dosage: 1 DF, QD
     Dates: start: 1999
  8. PREMPRO [Concomitant]
     Indication: MENOPAUSE
     Dosage: 0.625/2.5-0.625/5
     Dates: start: 20010917, end: 200908
  9. PREMARIN [Concomitant]
     Indication: MENOPAUSE
     Dosage: UNK
     Dates: start: 1994, end: 1998
  10. PROVERA [Concomitant]
     Indication: MENOPAUSE
     Dosage: UNK
     Dates: start: 1994, end: 1998
  11. CALCIUM (UNSPECIFIED) [Concomitant]
     Indication: OSTEOPOROSIS
  12. ESTROGENS (UNSPECIFIED) [Concomitant]
     Indication: OSTEOPOROSIS

REACTIONS (35)
  - Femur fracture [Unknown]
  - Femur fracture [Unknown]
  - Low turnover osteopathy [Unknown]
  - Osteoporosis [Unknown]
  - Stress fracture [Unknown]
  - Intramedullary rod insertion [Unknown]
  - Breast disorder female [Unknown]
  - Compression fracture [Unknown]
  - Barrett^s oesophagus [Unknown]
  - Calcium deficiency [Unknown]
  - Pain [Unknown]
  - Thrombosis [Unknown]
  - Dermatitis [Unknown]
  - Cataract operation [Unknown]
  - Spinal fracture [Unknown]
  - Wrist fracture [Unknown]
  - Fall [Unknown]
  - Spider vein [Unknown]
  - Fibrocystic breast disease [Unknown]
  - Cystocele [Unknown]
  - Nasal oedema [Unknown]
  - Lactose intolerance [Unknown]
  - Tuberculosis [Unknown]
  - Fatigue [Unknown]
  - Osteoarthritis [Unknown]
  - Exostosis [Unknown]
  - Arthritis [Unknown]
  - Infection [Unknown]
  - Lung disorder [Not Recovered/Not Resolved]
  - Prothrombin time prolonged [Unknown]
  - Gastrointestinal disorder [Unknown]
  - Body height decreased [Unknown]
  - Hyperlipidaemia [Unknown]
  - Diarrhoea [Unknown]
  - Gastrooesophageal reflux disease [Unknown]
